FAERS Safety Report 15868851 (Version 1)
Quarter: 2019Q1

REPORT INFORMATION
  Report Type: Spontaneous
  Country: US (occurrence: US)
  Receive Date: 20190125
  Receipt Date: 20190125
  Transmission Date: 20190417
  Serious: No
  Sender: FDA-Public Use
  Company Number: US-GLAXOSMITHKLINE-US2019009733

PATIENT
  Age: 69 Year
  Sex: Female

DRUGS (1)
  1. BREO ELLIPTA [Suspect]
     Active Substance: FLUTICASONE FUROATE\VILANTEROL TRIFENATATE
     Indication: RESPIRATORY TRACT INFECTION VIRAL
     Dosage: 1 PUFF(S), QD
     Route: 055
     Dates: start: 20190109

REACTIONS (4)
  - Oral pain [Not Recovered/Not Resolved]
  - Tongue disorder [Unknown]
  - Adverse drug reaction [Unknown]
  - Throat tightness [Unknown]

NARRATIVE: CASE EVENT DATE: 201901
